FAERS Safety Report 6826373-8 (Version None)
Quarter: 2010Q3

REPORT INFORMATION
  Report Type: 
  Country: None (occurrence: None)
  Receive Date: 20100709
  Receipt Date: 20100701
  Transmission Date: 20110219
  Serious: Yes (Other)
  Sender: FDA-Public Use
  Company Number: US-ASTRAZENECA-2007UW07729

PATIENT
  Age: 613 Month
  Sex: Male
  Weight: 152 kg

DRUGS (44)
  1. SEROQUEL [Suspect]
     Indication: ANXIETY
     Route: 048
     Dates: start: 19980601, end: 20050901
  2. SEROQUEL [Suspect]
     Indication: SLEEP DISORDER
     Route: 048
     Dates: start: 19980601, end: 20050901
  3. SEROQUEL [Suspect]
     Indication: DEPRESSION
     Route: 048
     Dates: start: 19980601, end: 20050901
  4. SEROQUEL [Suspect]
     Route: 048
     Dates: start: 19980901, end: 20031201
  5. SEROQUEL [Suspect]
     Route: 048
     Dates: start: 19980901, end: 20031201
  6. SEROQUEL [Suspect]
     Route: 048
     Dates: start: 19980901, end: 20031201
  7. SEROQUEL [Suspect]
     Dosage: 100 TO 200 MG
     Route: 048
     Dates: start: 20000101, end: 20010101
  8. SEROQUEL [Suspect]
     Dosage: 100 TO 200 MG
     Route: 048
     Dates: start: 20000101, end: 20010101
  9. SEROQUEL [Suspect]
     Dosage: 100 TO 200 MG
     Route: 048
     Dates: start: 20000101, end: 20010101
  10. SEROQUEL [Suspect]
     Dosage: 400 MG TO 600 MG
     Route: 048
     Dates: start: 20010502, end: 20020408
  11. SEROQUEL [Suspect]
     Dosage: 400 MG TO 600 MG
     Route: 048
     Dates: start: 20010502, end: 20020408
  12. SEROQUEL [Suspect]
     Dosage: 400 MG TO 600 MG
     Route: 048
     Dates: start: 20010502, end: 20020408
  13. SEROQUEL [Suspect]
     Dosage: 100 TO 600 MG
     Route: 048
     Dates: start: 20020531
  14. SEROQUEL [Suspect]
     Dosage: 100 TO 600 MG
     Route: 048
     Dates: start: 20020531
  15. SEROQUEL [Suspect]
     Dosage: 100 TO 600 MG
     Route: 048
     Dates: start: 20020531
  16. SEROQUEL [Suspect]
     Dosage: 200 MG TO 600 MG
     Route: 048
     Dates: start: 20040322, end: 20060130
  17. SEROQUEL [Suspect]
     Dosage: 200 MG TO 600 MG
     Route: 048
     Dates: start: 20040322, end: 20060130
  18. SEROQUEL [Suspect]
     Dosage: 200 MG TO 600 MG
     Route: 048
     Dates: start: 20040322, end: 20060130
  19. SEROQUEL [Suspect]
     Dosage: 600 MG TO 800 MG
     Route: 048
     Dates: start: 20040817, end: 20070506
  20. SEROQUEL [Suspect]
     Dosage: 600 MG TO 800 MG
     Route: 048
     Dates: start: 20040817, end: 20070506
  21. SEROQUEL [Suspect]
     Dosage: 600 MG TO 800 MG
     Route: 048
     Dates: start: 20040817, end: 20070506
  22. SEROQUEL [Suspect]
     Dosage: 600 MG
     Route: 048
     Dates: start: 20041012, end: 20050905
  23. SEROQUEL [Suspect]
     Dosage: 600 MG
     Route: 048
     Dates: start: 20041012, end: 20050905
  24. SEROQUEL [Suspect]
     Dosage: 600 MG
     Route: 048
     Dates: start: 20041012, end: 20050905
  25. SEROQUEL [Suspect]
     Dosage: 600 MG
     Route: 048
     Dates: start: 20060420, end: 20060425
  26. SEROQUEL [Suspect]
     Dosage: 600 MG
     Route: 048
     Dates: start: 20060420, end: 20060425
  27. SEROQUEL [Suspect]
     Dosage: 600 MG
     Route: 048
     Dates: start: 20060420, end: 20060425
  28. RISPERDAL [Concomitant]
     Dates: start: 20030409
  29. ZYPREXA [Concomitant]
     Dates: start: 20000801, end: 20000901
  30. ZYPREXA [Concomitant]
     Dosage: 15 MG 2 TABLET AT BEDTIME
     Dates: start: 20030120
  31. THORAZINE [Concomitant]
  32. REMERON [Concomitant]
     Dosage: 15 TO 45 MG
     Dates: start: 20020408
  33. TRAZODONE [Concomitant]
     Dosage: 50 TO 150 MG
     Dates: start: 20051117
  34. KLONOPIN [Concomitant]
     Route: 048
     Dates: start: 20020408
  35. LAMICTAL [Concomitant]
     Dosage: 150 TO 200 MG
     Dates: start: 20050426
  36. TOPAMAX [Concomitant]
     Dosage: 200 TO 800 MG
     Dates: start: 20020408
  37. AVANDIA [Concomitant]
     Dates: start: 20030120
  38. SERZONE [Concomitant]
     Dates: start: 20020408
  39. FLOMAX [Concomitant]
     Dates: start: 20020408
  40. WELLBUTRIN [Concomitant]
     Dates: start: 20030409
  41. MELLARIL [Concomitant]
     Dosage: 50 TO 150 MG
     Dates: start: 20030409
  42. METFORMIN HCL [Concomitant]
     Dosage: 500 MG 2 TABLET IN MORNING, 1 TABLET IN EVENING
     Dates: start: 20020210
  43. ASPIRIN [Concomitant]
     Dates: start: 20050809
  44. LITHIUM CARBONATE [Concomitant]

REACTIONS (6)
  - ARTHRITIS [None]
  - DIABETES MELLITUS [None]
  - DIABETIC NEUROPATHY [None]
  - RHEUMATOID ARTHRITIS [None]
  - TYPE 2 DIABETES MELLITUS [None]
  - WEIGHT INCREASED [None]
